FAERS Safety Report 12111734 (Version 3)
Quarter: 2016Q1

REPORT INFORMATION
  Report Type: Spontaneous
  Country: US (occurrence: US)
  Receive Date: 20160224
  Receipt Date: 20160323
  Transmission Date: 20160526
  Serious: No
  Sender: FDA-Public Use
  Company Number: US-LUNDBECK-DKLU2010014

PATIENT
  Sex: Male

DRUGS (2)
  1. NORTHERA [Suspect]
     Active Substance: DROXIDOPA
     Route: 048
     Dates: start: 20160127
  2. NORTHERA [Suspect]
     Active Substance: DROXIDOPA
     Indication: ORTHOSTATIC HYPOTENSION
     Route: 065

REACTIONS (13)
  - Drug effect decreased [Not Recovered/Not Resolved]
  - Blood pressure increased [Unknown]
  - Blood pressure orthostatic decreased [Not Recovered/Not Resolved]
  - Fatigue [Unknown]
  - Illusion [Not Recovered/Not Resolved]
  - Urine output increased [Unknown]
  - Fall [Not Recovered/Not Resolved]
  - Drug dose omission [Not Recovered/Not Resolved]
  - Condition aggravated [Not Recovered/Not Resolved]
  - Pollakiuria [Unknown]
  - Dizziness [Not Recovered/Not Resolved]
  - Presyncope [Unknown]
  - Nausea [Unknown]
